FAERS Safety Report 25375428 (Version 7)
Quarter: 2025Q4

REPORT INFORMATION
  Report Type: Spontaneous
  Country: EU (occurrence: EU)
  Receive Date: 20250529
  Receipt Date: 20251024
  Transmission Date: 20260117
  Serious: Yes (Other)
  Sender: APELLIS PHARMACEUTICALS
  Company Number: EU-BIOVITRUM-2024-FR-009452

PATIENT

DRUGS (2)
  1. PEGCETACOPLAN [Suspect]
     Active Substance: PEGCETACOPLAN
     Indication: C3 glomerulopathy
     Dosage: UNKNOWN
     Route: 058
  2. ECULIZUMAB [Concomitant]
     Active Substance: ECULIZUMAB
     Indication: Product used for unknown indication
     Dosage: EVERY 15 DAYS BUT DISCONTINUED.

REACTIONS (5)
  - Off label use [Not Recovered/Not Resolved]
  - C3 glomerulopathy [Unknown]
  - Disease progression [Unknown]
  - Thrombotic microangiopathy [Unknown]
  - End stage renal disease [Unknown]
